FAERS Safety Report 17491055 (Version 1)
Quarter: 2020Q1

REPORT INFORMATION
  Report Type: Report from Study
  Country: US (occurrence: US)
  Receive Date: 20200303
  Receipt Date: 20200303
  Transmission Date: 20200409
  Serious: Yes (Life-Threatening)
  Sender: FDA-Public Use
  Company Number: US-ASTRAZENECA-2020SE32011

PATIENT
  Sex: Male

DRUGS (2)
  1. DURVALUMAB. [Suspect]
     Active Substance: DURVALUMAB
     Indication: HEAD AND NECK CANCER
     Dosage: 1500 MG IV Q4WEEKS BEGINNING WEEK 2
     Route: 042
     Dates: start: 20190521
  2. RADIOTHERAPY [Suspect]
     Active Substance: RADIATION THERAPY
     Indication: HEAD AND NECK CANCER
     Dosage: 70 GY (2 GY/FX)
     Route: 065

REACTIONS (1)
  - Neoplasm [Unknown]
